FAERS Safety Report 9936975 (Version 1)
Quarter: 2014Q1

REPORT INFORMATION
  Report Type: Spontaneous
  Country: US (occurrence: None)
  Receive Date: 20140115
  Receipt Date: 20140115
  Transmission Date: 20141002
  Serious: No
  Sender: FDA-Public Use
  Company Number: 2013US002678

PATIENT
  Age: 68 Year
  Sex: Female
  Weight: 66 kg

DRUGS (10)
  1. ICLUSIG (PONATINIB) TABLET, 15MG [Suspect]
     Indication: CHRONIC MYELOID LEUKAEMIA
     Route: 048
  2. CARVEDILOL (CARVEDILOL) [Concomitant]
  3. ENALAPRIL (ENALAPRIL) [Concomitant]
  4. CALTRATE D (CALCIUM CARBONATE, COLECALCIFEROL) [Concomitant]
  5. CENTRUM (MINERALS NOS, VITAMINS NOS) [Concomitant]
  6. MIRALAX (MACROGOL) [Concomitant]
  7. NORVASC (AMLODIPINE BESILATE) [Concomitant]
  8. VITAMIN D (VITAMIN D) [Concomitant]
  9. STOOL SOFTENER (DOCUSATE SODIUM) [Concomitant]
  10. SILVER OINTMENT (SILVER) [Concomitant]

REACTIONS (2)
  - Joint swelling [None]
  - Arthralgia [None]
